FAERS Safety Report 4898315-6 (Version None)
Quarter: 2006Q1

REPORT INFORMATION
  Report Type: 
  Country: None (occurrence: None)
  Receive Date: 20060127
  Receipt Date: 20060119
  Transmission Date: 20060701
  Serious: Yes (Hospitalization)
  Sender: FDA-Public Use
  Company Number: 2006007419

PATIENT
  Sex: Male
  Weight: 63.5036 kg

DRUGS (4)
  1. KAOPECTATE (BISMUTH SUBSALICYLATE) [Suspect]
     Indication: CONSTIPATION
     Dosage: 2 CAPLETS DAILY, ORAL
     Route: 048
     Dates: start: 20010101
  2. TAMSULOSIN HYDROCHLORIDE (TAMSULOSIN HYDROCHLORIDE) [Concomitant]
  3. FUROSEMIDE [Concomitant]
  4. DIGOXIN [Concomitant]

REACTIONS (2)
  - GASTROINTESTINAL INFLAMMATION [None]
  - RECTAL HAEMORRHAGE [None]
